FAERS Safety Report 20227049 (Version 3)
Quarter: 2022Q1

REPORT INFORMATION
  Report Type: Spontaneous
  Country: BR (occurrence: BR)
  Receive Date: 20211224
  Receipt Date: 20220211
  Transmission Date: 20220423
  Serious: Yes (Hospitalization, Other)
  Sender: FDA-Public Use
  Company Number: BR-JNJFOC-20210926669

PATIENT
  Sex: Female

DRUGS (3)
  1. HALOPERIDOL DECANOATE [Suspect]
     Active Substance: HALOPERIDOL DECANOATE
     Indication: Product used for unknown indication
     Dosage: 20 DOSES OF HALDOL DECANOATO IN ONLY 2 DAYS.
     Route: 065
  2. HALOPERIDOL DECANOATE [Suspect]
     Active Substance: HALOPERIDOL DECANOATE
     Dosage: 37 APPLICATIONS ON IV?74 APPLICATIONS INTRAVENOUSLY IN 14 DAYS?5 MG IV
     Route: 042
  3. HALOPERIDOL DECANOATE [Suspect]
     Active Substance: HALOPERIDOL DECANOATE
     Dosage: 12 APPLICATIONS ON IM?24 APPLICATIONS INTRAMUSCULARLY IN 13 DAYS
     Route: 030

REACTIONS (9)
  - Hospitalisation [Unknown]
  - Brain injury [Unknown]
  - Muscular weakness [Unknown]
  - Emotional disorder [Unknown]
  - Overdose [Unknown]
  - Motor dysfunction [Unknown]
  - Muscle injury [Unknown]
  - Off label use [Unknown]
  - Incorrect route of product administration [Unknown]

NARRATIVE: CASE EVENT DATE: 20110101
